FAERS Safety Report 8325314-4 (Version None)
Quarter: 2012Q2

REPORT INFORMATION
  Report Type: 
  Country: None (occurrence: None)
  Receive Date: 20120501
  Receipt Date: 20120425
  Transmission Date: 20120825
  Serious: Yes (Hospitalization)
  Sender: FDA-Public Use
  Company Number: US-ASTRAZENECA-2011SE73527

PATIENT
  Age: 74 Year
  Sex: Female

DRUGS (3)
  1. CRESTOR [Suspect]
     Route: 048
  2. ZETIA [Concomitant]
  3. LIPITOR [Concomitant]

REACTIONS (1)
  - HEART VALVE STENOSIS [None]
